FAERS Safety Report 6882845-1 (Version None)
Quarter: 2010Q3

REPORT INFORMATION
  Report Type: 
  Country: None (occurrence: None)
  Receive Date: 20100729
  Receipt Date: 20100728
  Transmission Date: 20110219
  Serious: Yes (Death)
  Sender: FDA-Public Use
  Company Number: ZA-SANOFI-AVENTIS-2010SA044093

PATIENT
  Age: 51 Year
  Sex: Female
  Weight: 77.7 kg

DRUGS (5)
  1. DOCETAXEL [Suspect]
     Indication: BREAST CANCER
     Route: 041
     Dates: start: 20100702, end: 20100702
  2. GRANOCYTE [Suspect]
     Indication: PROPHYLAXIS
     Dates: start: 20100703, end: 20100707
  3. DEXAMETHASONE [Concomitant]
  4. CLEXANE [Concomitant]
  5. ESOMEPRAZOLE MAGNESIUM [Concomitant]

REACTIONS (1)
  - DYSPNOEA [None]
